FAERS Safety Report 7433561-9 (Version None)
Quarter: 2011Q2

REPORT INFORMATION
  Report Type: 
  Country: None (occurrence: None)
  Receive Date: 20110422
  Receipt Date: 20110408
  Transmission Date: 20111010
  Serious: Yes (Death)
  Sender: FDA-Public Use
  Company Number: FR-GENENTECH-316776

PATIENT
  Age: 72 Year
  Sex: Male

DRUGS (31)
  1. RITUXIMAB [Suspect]
     Dosage: 375 MG/M2, UNK
     Route: 042
     Dates: start: 20081021
  2. RITUXIMAB [Suspect]
     Dosage: 375 MG/M2, UNK
     Route: 042
  3. RITUXIMAB [Suspect]
     Dosage: 375 MG/M2, UNK
     Route: 042
     Dates: start: 20081204
  4. CARDIOXANE [Concomitant]
     Dosage: 1000 MG/M2, UNK
     Dates: start: 20090220
  5. ENDOXAN [Concomitant]
     Dosage: 750 MG/M2, UNK
     Dates: start: 20081021
  6. ADRIABLASTINA [Concomitant]
     Dosage: 50 MG/M2, UNK
  7. ENDOXAN [Concomitant]
     Dosage: 750 MG/M2, UNK
     Dates: start: 20081204
  8. RITUXIMAB [Suspect]
     Indication: LYMPHOMA
     Dosage: UNK
     Route: 042
     Dates: start: 20070101
  9. ONCOVIN [Concomitant]
     Dosage: 1.4 MG/M2, UNK
  10. ADRIABLASTINA [Concomitant]
     Dosage: 50 MG/M2, UNK
     Dates: start: 20090220
  11. CARDIOXANE [Concomitant]
     Dosage: 1000 MG/M2, UNK
     Dates: start: 20081229
  12. CARDIOXANE [Concomitant]
     Dosage: 1000 MG/M2, UNK
     Dates: start: 20090130
  13. ENDOXAN [Concomitant]
     Dosage: 750 MG/M2, UNK
     Dates: start: 20090130
  14. HOLOXAN [Concomitant]
     Dosage: UNK
  15. ADRIABLASTINA [Concomitant]
     Dosage: 50 MG/M2, UNK
  16. ADRIABLASTINA [Concomitant]
     Dosage: 50 MG/M2, UNK
     Dates: start: 20081021
  17. CARDIOXANE [Concomitant]
     Dosage: 1000 MG/M2, UNK
     Dates: start: 20081021
  18. CARDIOXANE [Concomitant]
     Dosage: 1000 MG/M2, UNK
     Dates: start: 20081204
  19. RITUXIMAB [Suspect]
     Dosage: 375 MG/M2, UNK
     Route: 042
     Dates: start: 20081229
  20. RITUXIMAB [Suspect]
     Dosage: 375 MG/M2, UNK
     Route: 042
     Dates: start: 20090130
  21. SOLUDECADRON [Concomitant]
     Dosage: UNK
  22. ONCOVIN [Concomitant]
     Dosage: 1.4 MG/M2, UNK
     Dates: start: 20081204
  23. ADRIABLASTINA [Concomitant]
     Dosage: 50 MG/M2, UNK
     Dates: start: 20081204
  24. ENDOXAN [Concomitant]
     Dosage: 750 MG/M2, UNK
     Dates: start: 20081229
  25. RITUXIMAB [Suspect]
     Dosage: 375 MG/M2, UNK
     Route: 042
     Dates: start: 20090220
  26. CARDIOXANE [Concomitant]
     Dosage: 1000 MG/M2, UNK
  27. ADRIABLASTINA [Concomitant]
     Dosage: 50 MG/M2, UNK
     Dates: start: 20090130
  28. RITUXIMAB [Suspect]
     Dosage: UNK
     Route: 042
     Dates: start: 20080919
  29. ADRIABLASTINA [Concomitant]
     Dosage: 50 MG/M2, UNK
     Dates: start: 20081229
  30. ENDOXAN [Concomitant]
     Dosage: 3RD THERAPY.
  31. ENDOXAN [Concomitant]
     Dosage: 750 MG/M2, UNK
     Dates: start: 20090220

REACTIONS (3)
  - DEATH [None]
  - CHEST PAIN [None]
  - COUGH [None]
